FAERS Safety Report 7005272-5 (Version None)
Quarter: 2010Q3

REPORT INFORMATION
  Report Type: 
  Country: None (occurrence: None)
  Receive Date: 20100920
  Receipt Date: 20100920
  Transmission Date: 20110219
  Serious: Yes (Other)
  Sender: FDA-Public Use
  Company Number: None

PATIENT
  Age: 16 Year
  Sex: Female
  Weight: 52.1637 kg

DRUGS (1)
  1. SINGULAIR [Suspect]
     Indication: ANAPHYLACTIC REACTION
     Dates: start: 20100908, end: 20100915

REACTIONS (5)
  - CHILLS [None]
  - FATIGUE [None]
  - FEELING OF DESPAIR [None]
  - HOT FLUSH [None]
  - NERVOUSNESS [None]
